FAERS Safety Report 19135244 (Version 2)
Quarter: 2021Q2

REPORT INFORMATION
  Report Type: Spontaneous
  Country: US (occurrence: US)
  Receive Date: 20210414
  Receipt Date: 20210416
  Transmission Date: 20210717
  Serious: Yes (Hospitalization, Other)
  Sender: FDA-Public Use
  Company Number: US-PURDUE-USA-2021-0242129

PATIENT
  Sex: Male

DRUGS (1)
  1. HYDROCODONE BITARTRATE (SIMILAR TO NDA 206627) [Suspect]
     Active Substance: HYDROCODONE BITARTRATE
     Indication: FRACTURE
     Dosage: 10 MG, TID, 120 PILLS
     Route: 065

REACTIONS (3)
  - Suicidal behaviour [Unknown]
  - Drug dependence [Unknown]
  - Quality of life decreased [Unknown]
